FAERS Safety Report 8572822-7 (Version None)
Quarter: 2012Q3

REPORT INFORMATION
  Report Type: 
  Country: None (occurrence: None)
  Receive Date: 20120806
  Receipt Date: 20101006
  Transmission Date: 20120928
  Serious: Yes (Death, Hospitalization, Other)
  Sender: FDA-Public Use
  Company Number: DE-CELGENEUS-062-50794-12053196

PATIENT
  Age: 38 Year
  Sex: Male
  Weight: 78.2 kg

DRUGS (6)
  1. RED BLOOD CELLS [Concomitant]
     Route: 041
     Dates: start: 20100617
  2. PLATELET [Concomitant]
     Route: 041
     Dates: start: 20100528
  3. VIDAZA [Suspect]
     Route: 058
     Dates: start: 20100412
  4. RED BLOOD CELLS [Concomitant]
     Route: 041
     Dates: start: 20100728
  5. VIDAZA [Suspect]
     Route: 058
     Dates: start: 20100705, end: 20100713
  6. VIDAZA [Suspect]
     Route: 058
     Dates: start: 20100510

REACTIONS (10)
  - DEATH [None]
  - LEUKOPENIA [None]
  - THROMBOCYTOPENIA [None]
  - GENERAL PHYSICAL HEALTH DETERIORATION [None]
  - PNEUMONIA [None]
  - HAEMOGLOBIN [None]
  - CONSTIPATION [None]
  - BLOOD BILIRUBIN [None]
  - GRANULOCYTOPENIA [None]
  - PETECHIAE [None]
